FAERS Safety Report 9276708 (Version 2)
Quarter: 2013Q3

REPORT INFORMATION
  Report Type: Report from Study
  Country: US (occurrence: US)
  Receive Date: 20130507
  Receipt Date: 20130805
  Transmission Date: 20140515
  Serious: No
  Sender: FDA-Public Use
  Company Number: PHEH2013US009883

PATIENT
  Age: 20 Year
  Sex: Female
  Weight: 87.98 kg

DRUGS (5)
  1. TASIGNA [Suspect]
     Indication: CHRONIC MYELOID LEUKAEMIA
     Dosage: 300 MG, BID
     Dates: start: 201303
  2. ROBINUL [Concomitant]
     Dosage: 1 MG
  3. LEVOTHYROXIN [Concomitant]
     Dosage: 75 UG
  4. LORYNA [Concomitant]
  5. IBUPROFEN [Concomitant]
     Dosage: 200 MG

REACTIONS (4)
  - Blepharospasm [Unknown]
  - Nausea [Unknown]
  - Hypoaesthesia [Unknown]
  - Memory impairment [Unknown]
